FAERS Safety Report 15953571 (Version 3)
Quarter: 2019Q2

REPORT INFORMATION
  Report Type: Spontaneous
  Country: DE (occurrence: DE)
  Receive Date: 20190212
  Receipt Date: 20190418
  Transmission Date: 20190711
  Serious: Yes (Life-Threatening, Hospitalization, Other)
  Sender: FDA-Public Use
  Company Number: PHHY2019DE029191

PATIENT
  Age: 59 Year
  Sex: Female
  Weight: 90 kg

DRUGS (2)
  1. COSENTYX [Suspect]
     Active Substance: SECUKINUMAB
     Indication: PSORIATIC ARTHROPATHY
     Dosage: 300 MG, QMO
     Route: 058
     Dates: start: 20170602, end: 20190102
  2. VITAMIN D3 [Concomitant]
     Active Substance: CHOLECALCIFEROL
     Indication: PRODUCT USED FOR UNKNOWN INDICATION
     Dosage: UNK
     Route: 065

REACTIONS (25)
  - Dizziness [Unknown]
  - Abdominal pain [Unknown]
  - Hypoalbuminaemia [Unknown]
  - General physical health deterioration [Unknown]
  - Acute kidney injury [Recovered/Resolved]
  - Glomerular filtration rate decreased [Unknown]
  - Enteritis [Recovering/Resolving]
  - Dehydration [Recovered/Resolved]
  - Asthenia [Unknown]
  - Vomiting [Unknown]
  - Pollakiuria [Recovered/Resolved]
  - Campylobacter test positive [Unknown]
  - Colitis ulcerative [Unknown]
  - Pyrexia [Recovered/Resolved]
  - Decreased appetite [Unknown]
  - Weight decreased [Unknown]
  - Hyponatraemia [Unknown]
  - Chromaturia [Recovered/Resolved]
  - Diarrhoea [Unknown]
  - Pyrexia [Unknown]
  - Dehydration [Unknown]
  - Hyperkalaemia [Unknown]
  - Pain in extremity [Unknown]
  - Lethargy [Recovered/Resolved]
  - Prerenal failure [Unknown]

NARRATIVE: CASE EVENT DATE: 20181228
